FAERS Safety Report 4378743-8 (Version None)
Quarter: 2004Q2

REPORT INFORMATION
  Report Type: 
  Country: None (occurrence: None)
  Receive Date: 20040609
  Receipt Date: 20040525
  Transmission Date: 20050107
  Serious: Yes (Other)
  Sender: FDA-Public Use
  Company Number: USA040360997

PATIENT
  Age: 67 Year
  Sex: Female
  Weight: 80 kg

DRUGS (1)
  1. HUMULIN N [Suspect]
     Dosage: 45 U/DAY
     Dates: start: 19860101

REACTIONS (6)
  - CARTILAGE INJURY [None]
  - CATARACT [None]
  - DIABETIC RETINAL OEDEMA [None]
  - DIABETIC RETINOPATHY [None]
  - POST PROCEDURAL COMPLICATION [None]
  - POSTERIOR CAPSULE OPACIFICATION [None]
